FAERS Safety Report 12508149 (Version 3)
Quarter: 2016Q3

REPORT INFORMATION
  Report Type: Spontaneous
  Country: US (occurrence: US)
  Receive Date: 20160629
  Receipt Date: 20160825
  Transmission Date: 20161109
  Serious: No
  Sender: FDA-Public Use
  Company Number: US-PFIZER INC-2016318374

PATIENT
  Age: 67 Year
  Sex: Female
  Weight: 61 kg

DRUGS (5)
  1. LEVOXYL [Suspect]
     Active Substance: LEVOTHYROXINE SODIUM
     Dosage: 75 MG, UNK
  2. LEVOXYL [Suspect]
     Active Substance: LEVOTHYROXINE SODIUM
     Indication: THYROID DISORDER
     Dosage: 75 MG, 1X/DAY
     Route: 048
     Dates: start: 2014
  3. LEVOXYL [Suspect]
     Active Substance: LEVOTHYROXINE SODIUM
     Indication: BASEDOW^S DISEASE
     Dosage: UNK
     Dates: start: 2001
  4. ATENOLOL. [Concomitant]
     Active Substance: ATENOLOL
     Dosage: 12.5 MG, AS NEEDED
  5. LEVOXYL [Suspect]
     Active Substance: LEVOTHYROXINE SODIUM
     Dosage: 75 MG, 1X/DAY
     Route: 048
     Dates: start: 201606

REACTIONS (11)
  - Irritability [Recovered/Resolved]
  - Temperature intolerance [Recovered/Resolved]
  - Anxiety [Recovered/Resolved]
  - Insomnia [Recovered/Resolved]
  - Nervousness [Recovered/Resolved]
  - Frequent bowel movements [Recovered/Resolved]
  - Heart rate increased [Recovered/Resolved]
  - Prescribed overdose [Recovered/Resolved]
  - Blood thyroid stimulating hormone increased [Unknown]
  - Psychomotor hyperactivity [Unknown]
  - Malaise [Recovered/Resolved]
